FAERS Safety Report 6852554-3 (Version None)
Quarter: 2010Q3

REPORT INFORMATION
  Report Type: 
  Country: None (occurrence: None)
  Receive Date: 20100717
  Receipt Date: 20071119
  Transmission Date: 20110219
  Serious: No
  Sender: FDA-Public Use
  Company Number: US-PFIZER INC-2007098562

PATIENT
  Sex: Male
  Weight: 81.8 kg

DRUGS (2)
  1. CHANTIX [Suspect]
     Indication: SMOKING CESSATION THERAPY
     Dates: start: 20071101
  2. CELEXA [Concomitant]
     Indication: ANXIETY

REACTIONS (4)
  - FEELING ABNORMAL [None]
  - HEAD DISCOMFORT [None]
  - NAUSEA [None]
  - SLUGGISHNESS [None]
